FAERS Safety Report 13091603 (Version 5)
Quarter: 2017Q2

REPORT INFORMATION
  Report Type: Report from Study
  Country: US (occurrence: US)
  Receive Date: 20170106
  Receipt Date: 20170525
  Transmission Date: 20170830
  Serious: Yes (Other)
  Sender: FDA-Public Use
  Company Number: US-AMGEN-USASL2017000713

PATIENT
  Age: 60 Year
  Sex: Male

DRUGS (3)
  1. ENBREL [Suspect]
     Active Substance: ETANERCEPT
     Indication: PSORIASIS
     Dosage: 50 MG, QWK
     Route: 065
     Dates: start: 201701
  2. ENBREL [Suspect]
     Active Substance: ETANERCEPT
     Indication: ANKYLOSING SPONDYLITIS
     Dosage: UNK
     Route: 065
  3. ENBREL [Suspect]
     Active Substance: ETANERCEPT
     Indication: PSORIATIC ARTHROPATHY
     Dosage: 25 MG, 2 TIMES/WK
     Route: 065
     Dates: end: 2011

REACTIONS (22)
  - Drug dose omission [Unknown]
  - Ankylosing spondylitis [Unknown]
  - Sleep apnoea syndrome [Unknown]
  - Fatigue [Not Recovered/Not Resolved]
  - Restless legs syndrome [Unknown]
  - Intervertebral disc degeneration [Unknown]
  - Deafness [Unknown]
  - Periarthritis [Unknown]
  - Psoriatic arthropathy [Unknown]
  - Restrictive pulmonary disease [Unknown]
  - Off label use [Recovered/Resolved]
  - Cardiac disorder [Unknown]
  - Myocardial infarction [Unknown]
  - Injection site pain [Unknown]
  - Bursitis [Unknown]
  - Quality of life decreased [Unknown]
  - Psoriasis [Unknown]
  - Back disorder [Unknown]
  - Pulmonary sarcoidosis [Unknown]
  - Liver sarcoidosis [Unknown]
  - Shoulder operation [Unknown]
  - Sarcoidosis [Unknown]

NARRATIVE: CASE EVENT DATE: 2000
